FAERS Safety Report 13662278 (Version 3)
Quarter: 2017Q3

REPORT INFORMATION
  Report Type: Spontaneous
  Country: JP (occurrence: JP)
  Receive Date: 20170617
  Receipt Date: 20170902
  Transmission Date: 20171127
  Serious: Yes (Other)
  Sender: FDA-Public Use
  Company Number: JP-AMGEN-JPNSP2017090522

PATIENT
  Age: 68 Year
  Sex: Female
  Weight: 55 kg

DRUGS (4)
  1. RANMARK [Suspect]
     Active Substance: DENOSUMAB
     Indication: METASTASES TO BONE
     Dosage: 120 MG, Q4WK (TOOK TOTAL 38 TIMES)
     Route: 058
     Dates: start: 201402, end: 20170511
  2. XELODA [Concomitant]
     Active Substance: CAPECITABINE
     Dosage: 1200 MG, BID
     Route: 048
     Dates: start: 20150122, end: 20150530
  3. XELODA [Concomitant]
     Active Substance: CAPECITABINE
     Dosage: 900 MG, BID
     Route: 048
     Dates: start: 20150606
  4. XELODA [Concomitant]
     Active Substance: CAPECITABINE
     Dosage: 300 MG, BID
     Route: 065

REACTIONS (1)
  - Osteonecrosis of external auditory canal [Recovering/Resolving]

NARRATIVE: CASE EVENT DATE: 20170509
